FAERS Safety Report 19485270 (Version 1)
Quarter: 2021Q3

REPORT INFORMATION
  Report Type: Report from Study
  Country: US (occurrence: US)
  Receive Date: 20210702
  Receipt Date: 20210702
  Transmission Date: 20211014
  Serious: Yes (Disabling, Other)
  Sender: FDA-Public Use
  Company Number: US-UCBSA-2021023837

PATIENT
  Age: 73 Year
  Sex: Female

DRUGS (1)
  1. CERTOLIZUMAB PEGOL [Suspect]
     Active Substance: CERTOLIZUMAB PEGOL
     Indication: RHEUMATOID ARTHRITIS
     Dosage: UNK
     Dates: start: 20201106

REACTIONS (4)
  - Rheumatoid arthritis [Unknown]
  - COVID-19 immunisation [Unknown]
  - Vaccination complication [Unknown]
  - Rotator cuff syndrome [Unknown]

NARRATIVE: CASE EVENT DATE: 20210301
